FAERS Safety Report 6718987-0 (Version None)
Quarter: 2010Q2

REPORT INFORMATION
  Report Type: 
  Country: None (occurrence: None)
  Receive Date: 20100507
  Receipt Date: 20100423
  Transmission Date: 20101027
  Serious: Yes (Other)
  Sender: FDA-Public Use
  Company Number: US-1181776

PATIENT
  Sex: Female

DRUGS (1)
  1. MAXITROL [Suspect]
     Indication: POSTOPERATIVE CARE
     Dosage: OPHTHALMIC
     Route: 047

REACTIONS (1)
  - INTRAOCULAR PRESSURE INCREASED [None]
